FAERS Safety Report 11112156 (Version 1)
Quarter: 2015Q2

REPORT INFORMATION
  Report Type: Spontaneous
  Country: US (occurrence: None)
  Receive Date: 20150513
  Receipt Date: 20150513
  Transmission Date: 20150821
  Serious: No
  Sender: FDA-Public Use
  Company Number: None

PATIENT
  Age: 45 Year
  Sex: Female
  Weight: 54.43 kg

DRUGS (2)
  1. IBUPROPHEN AND BENADRYL [Concomitant]
  2. NICOTINE POLACRILEX [Suspect]
     Active Substance: NICOTINE
     Indication: SMOKING CESSATION THERAPY
     Dates: start: 20150503, end: 20150504

REACTIONS (7)
  - Pharyngeal ulceration [None]
  - Oropharyngeal blistering [None]
  - Lip swelling [None]
  - Burning sensation [None]
  - Lip ulceration [None]
  - Mouth ulceration [None]
  - Weight decreased [None]

NARRATIVE: CASE EVENT DATE: 20150503
